FAERS Safety Report 7465017-1 (Version None)
Quarter: 2011Q2

REPORT INFORMATION
  Report Type: 
  Country: None (occurrence: None)
  Receive Date: 20110509
  Receipt Date: 20110429
  Transmission Date: 20111010
  Serious: Yes (Hospitalization)
  Sender: FDA-Public Use
  Company Number: US-JNJFOC-20110501276

PATIENT
  Sex: Female
  Weight: 68.95 kg

DRUGS (4)
  1. FENTANYL [Suspect]
     Indication: FIBROMYALGIA
     Dosage: STOPPED IN 2011
     Route: 062
  2. FENTANYL-100 [Suspect]
     Indication: BEHCET'S SYNDROME
     Route: 062
  3. FENTANYL [Suspect]
     Indication: BEHCET'S SYNDROME
     Dosage: STOPPED IN 2011
     Route: 062
  4. FENTANYL-100 [Suspect]
     Indication: FIBROMYALGIA
     Route: 062

REACTIONS (6)
  - SWELLING FACE [None]
  - ROAD TRAFFIC ACCIDENT [None]
  - CONTUSION [None]
  - PRODUCT QUALITY ISSUE [None]
  - PERIORBITAL HAEMATOMA [None]
  - GROIN ABSCESS [None]
